FAERS Safety Report 14225217 (Version 5)
Quarter: 2018Q1

REPORT INFORMATION
  Report Type: Report from Study
  Country: US (occurrence: US)
  Receive Date: 20171127
  Receipt Date: 20180320
  Transmission Date: 20180508
  Serious: Yes (Death, Hospitalization, Other)
  Sender: FDA-Public Use
  Company Number: PHHO2017US015955

PATIENT
  Age: 67 Year
  Sex: Female

DRUGS (3)
  1. CARBOPLATIN. [Suspect]
     Active Substance: CARBOPLATIN
     Indication: MALIGNANT PERITONEAL NEOPLASM
     Dosage: 534 MG, UNK
     Route: 042
     Dates: start: 20171024, end: 20171024
  2. INC424A [Suspect]
     Active Substance: RUXOLITINIB
     Indication: MALIGNANT PERITONEAL NEOPLASM
     Dosage: 290 MG, (TOTAL DOSE FIRST COURSE)
     Route: 048
     Dates: start: 20171024, end: 20171107
  3. PACLITAXEL. [Suspect]
     Active Substance: PACLITAXEL
     Indication: MALIGNANT PERITONEAL NEOPLASM
     Dosage: 226 MG, UNK
     Route: 042
     Dates: start: 20171024, end: 20171031

REACTIONS (8)
  - Muscular weakness [Unknown]
  - Neutrophil count decreased [Unknown]
  - Atrial fibrillation [Unknown]
  - Death [Fatal]
  - Cerebrovascular accident [Unknown]
  - Cerebral ischaemia [Unknown]
  - Shock [Unknown]
  - Infection [Unknown]

NARRATIVE: CASE EVENT DATE: 201711
